FAERS Safety Report 8891996 (Version 1)
Quarter: 2012Q4

REPORT INFORMATION
  Report Type: 
  Country: US (occurrence: US)
  Receive Date: 20121107
  Receipt Date: 20121107
  Transmission Date: 20130627
  Serious: No
  Sender: FDA-Public Use
  Company Number: US-AMGEN-USASP2011055748

PATIENT
  Age: 64 Year
  Sex: Female
  Weight: 175 kg

DRUGS (4)
  1. ENBREL [Suspect]
     Indication: RHEUMATOID ARTHRITIS
     Dosage: 50 mg, qwk
  2. ZOLOFT [Concomitant]
     Dosage: 25 mg, UNK
  3. SYNTHROID [Concomitant]
     Dosage: 25 mug, UNK
  4. MULTIVITAMIN                       /00097801/ [Concomitant]

REACTIONS (2)
  - Rash papular [Unknown]
  - Pruritus [Unknown]
